FAERS Safety Report 9189385 (Version 1)
Quarter: 2013Q1

REPORT INFORMATION
  Report Type: Spontaneous
  Country: US (occurrence: US)
  Receive Date: 20130326
  Receipt Date: 20130326
  Transmission Date: 20140127
  Serious: Yes (Other)
  Sender: FDA-Public Use
  Company Number: PHEH2013US006742

PATIENT
  Age: 68 Year
  Sex: Female
  Weight: 65.76 kg

DRUGS (12)
  1. GILENYA [Suspect]
     Dosage: 1 DF, DAY
     Route: 048
  2. ZOCOR [Concomitant]
     Dosage: 10 MG, UNK
  3. FOLIC ACID [Concomitant]
     Dosage: 1 MG, UNK
  4. IBUPROFEN [Concomitant]
     Dosage: 800 MG, UNK
  5. BACLOFEN [Concomitant]
     Dosage: 10 MG, UNK
  6. LEVOTHYROXIN [Concomitant]
     Dosage: 25 UG, UNK
  7. CALCIUM [Concomitant]
     Dosage: 600 (UNKNOWN UNITS)
  8. VITAMIN B12 [Concomitant]
     Dosage: 1000 CR
  9. LIALDA [Concomitant]
     Dosage: 1.2 G, UNK
  10. ASPIRIN BUFFERED [Concomitant]
     Dosage: 325 MG, UNK
  11. AMANTADINE [Concomitant]
     Dosage: 1000 MG, UNK
  12. BACTRIM DS [Concomitant]
     Dosage: 800-160 (UNKNOWN UNITS)

REACTIONS (1)
  - Convulsion [Unknown]
